FAERS Safety Report 7626745-8 (Version None)
Quarter: 2011Q3

REPORT INFORMATION
  Report Type: 
  Country: None (occurrence: None)
  Receive Date: 20110721
  Receipt Date: 20110708
  Transmission Date: 20111222
  Serious: Yes (Hospitalization, Other)
  Sender: FDA-Public Use
  Company Number: CA-ELI_LILLY_AND_COMPANY-CA201107002316

PATIENT
  Sex: Female

DRUGS (4)
  1. ZYPREXA [Suspect]
     Dosage: 10 MG, QD
     Dates: start: 19980731
  2. ZYPREXA [Suspect]
     Dosage: 5 MG, QD
  3. FLOMAX [Concomitant]
  4. ZYPREXA [Suspect]
     Dosage: 7.5 MG, EACH EVENING

REACTIONS (20)
  - DIABETIC KETOACIDOSIS [None]
  - HYPERTENSION [None]
  - TYPE 2 DIABETES MELLITUS [None]
  - HYPERTROPHIC CARDIOMYOPATHY [None]
  - ASPARTATE AMINOTRANSFERASE INCREASED [None]
  - HYPERLIPIDAEMIA [None]
  - LOSS OF CONSCIOUSNESS [None]
  - DIABETIC COMA [None]
  - HAEMATOMA [None]
  - ALANINE AMINOTRANSFERASE INCREASED [None]
  - DIABETES MELLITUS [None]
  - DIABETIC RETINOPATHY [None]
  - CONDITION AGGRAVATED [None]
  - SYNCOPE [None]
  - BRONCHITIS [None]
  - RHABDOMYOLYSIS [None]
  - RENAL FAILURE ACUTE [None]
  - HYPERGLYCAEMIA [None]
  - CARDIAC MURMUR [None]
  - ARTERIOSCLEROSIS CORONARY ARTERY [None]
